FAERS Safety Report 26089793 (Version 1)
Quarter: 2025Q4

REPORT INFORMATION
  Report Type: Spontaneous
  Country: US (occurrence: US)
  Receive Date: 20251125
  Receipt Date: 20251125
  Transmission Date: 20260118
  Serious: No
  Sender: BAUSCH AND LOMB
  Company Number: US-BAUSCHBL-2025BNL032256

PATIENT
  Age: 77 Year
  Sex: Female

DRUGS (1)
  1. VYZULTA [Suspect]
     Active Substance: LATANOPROSTENE BUNOD
     Indication: Glaucoma
     Dosage: 1 DROP IN EACH EYE NIGHTLY
     Route: 047

REACTIONS (8)
  - Eye disorder [Unknown]
  - Eye swelling [Unknown]
  - Eyelid margin crusting [Unknown]
  - Sleep disorder [Unknown]
  - Ocular hyperaemia [Unknown]
  - Eye pain [Unknown]
  - Product quality issue [Unknown]
  - Product use issue [Unknown]

NARRATIVE: CASE EVENT DATE: 20251116
